FAERS Safety Report 9401425 (Version 1)
Quarter: 2013Q3

REPORT INFORMATION
  Report Type: Spontaneous
  Country: CH (occurrence: CH)
  Receive Date: 20130715
  Receipt Date: 20130715
  Transmission Date: 20140515
  Serious: Yes (Hospitalization)
  Sender: FDA-Public Use
  Company Number: CH-ROCHE-1248337

PATIENT
  Age: 68 Year
  Sex: Female

DRUGS (5)
  1. VALIUM [Suspect]
     Indication: SEDATION
     Dosage: 130 MG, 185 MG, 120 MG
     Route: 065
     Dates: start: 20120702, end: 20120705
  2. SEROQUEL [Suspect]
     Indication: SEDATION
     Route: 065
     Dates: start: 20120703
  3. SEROQUEL [Suspect]
     Route: 065
     Dates: start: 20130704
  4. SEROQUEL [Suspect]
     Route: 065
     Dates: start: 20130705
  5. SEROQUEL [Suspect]
     Dosage: 0 - 0 - 2 - 2
     Route: 065
     Dates: start: 20130705

REACTIONS (1)
  - Somnolence [Unknown]
